FAERS Safety Report 16269960 (Version 1)
Quarter: 2019Q2

REPORT INFORMATION
  Report Type: Spontaneous
  Country: US (occurrence: US)
  Receive Date: 20190329
  Receipt Date: 20190329
  Transmission Date: 20190711
  Serious: Yes (Death)
  Sender: FDA-Public Use
  Company Number: None

PATIENT
  Age: 45 Year
  Sex: Male

DRUGS (1)
  1. BOTOX [Suspect]
     Active Substance: ONABOTULINUMTOXINA
     Indication: QUADRIPLEGIA
     Dosage: ?          OTHER DOSE:600 UNIT;OTHER FREQUENCY:Q3M;?
     Route: 030
     Dates: start: 20161227, end: 20190207

REACTIONS (1)
  - Death [None]

NARRATIVE: CASE EVENT DATE: 20190207
